FAERS Safety Report 20011577 (Version 1)
Quarter: 2021Q4

REPORT INFORMATION
  Report Type: Spontaneous
  Country: US (occurrence: US)
  Receive Date: 20211029
  Receipt Date: 20211029
  Transmission Date: 20220303
  Serious: No
  Sender: FDA-Public Use
  Company Number: US-TEVA-2021-US-1960743

PATIENT
  Age: 58 Year

DRUGS (11)
  1. AJOVY [Suspect]
     Active Substance: FREMANEZUMAB-VFRM
     Route: 065
     Dates: start: 202002
  2. AJOVY [Suspect]
     Active Substance: FREMANEZUMAB-VFRM
     Route: 065
     Dates: start: 202106, end: 2021
  3. PROZAC [Concomitant]
     Active Substance: FLUOXETINE HYDROCHLORIDE
  4. AZATHIOPRINE [Concomitant]
     Active Substance: AZATHIOPRINE
  5. LASIX [Concomitant]
     Active Substance: FUROSEMIDE
  6. SULINDAC [Concomitant]
     Active Substance: SULINDAC
  7. Klor [Concomitant]
  8. Nurtec-ODT [Concomitant]
     Route: 048
  9. PROTONIX [Concomitant]
     Active Substance: PANTOPRAZOLE SODIUM
  10. LEVOTHYROXINE [Concomitant]
     Active Substance: LEVOTHYROXINE
  11. FERROUS SULFATE [Concomitant]
     Active Substance: FERROUS SULFATE

REACTIONS (7)
  - Injection site rash [Recovered/Resolved]
  - Hypoaesthesia [Not Recovered/Not Resolved]
  - Migraine [Not Recovered/Not Resolved]
  - Rash [Not Recovered/Not Resolved]
  - Facial pain [Not Recovered/Not Resolved]
  - Rash pruritic [Not Recovered/Not Resolved]
  - Injection site induration [Recovered/Resolved]

NARRATIVE: CASE EVENT DATE: 20210101
